FAERS Safety Report 17872104 (Version 1)
Quarter: 2020Q2

REPORT INFORMATION
  Report Type: Spontaneous
  Country: DE (occurrence: DE)
  Receive Date: 20200608
  Receipt Date: 20200608
  Transmission Date: 20200714
  Serious: Yes (Other)
  Sender: FDA-Public Use
  Company Number: DE-PFIZER INC-2020029420

PATIENT
  Age: 62 Year
  Sex: Female

DRUGS (1)
  1. UNACID (AMPICILLIN SODIUM, SULBACTAM SODIUM) [Suspect]
     Active Substance: AMPICILLIN SODIUM\SULBACTAM SODIUM
     Indication: TRACHEOBRONCHITIS
     Dosage: UNK

REACTIONS (1)
  - Still^s disease [Unknown]
